FAERS Safety Report 4317753-3 (Version None)
Quarter: 2004Q1

REPORT INFORMATION
  Report Type: 
  Country: None (occurrence: None)
  Receive Date: 20040315
  Receipt Date: 20040220
  Transmission Date: 20041129
  Serious: Yes (Hospitalization)
  Sender: FDA-Public Use
  Company Number: JP-BRISTOL-MYERS SQUIBB COMPANY-12512695

PATIENT
  Age: 26 Year
  Sex: Male

DRUGS (2)
  1. VEPESID [Suspect]
     Indication: CHRONIC MYELOID LEUKAEMIA
     Dates: start: 20020517, end: 20020519
  2. NOVANTRONE [Suspect]
     Indication: CHRONIC MYELOID LEUKAEMIA
     Dates: start: 20020517, end: 20020519

REACTIONS (4)
  - BLOOD LACTATE DEHYDROGENASE INCREASED [None]
  - MULTI-ORGAN FAILURE [None]
  - RETROPERITONEAL NEOPLASM [None]
  - WHITE BLOOD CELL COUNT DECREASED [None]
